FAERS Safety Report 9560081 (Version 2)
Quarter: 2013Q4

REPORT INFORMATION
  Report Type: Spontaneous
  Country: US (occurrence: US)
  Receive Date: 20130927
  Receipt Date: 20131018
  Transmission Date: 20140711
  Serious: No
  Sender: FDA-Public Use
  Company Number: US-PFIZER INC-2013272966

PATIENT
  Age: 62 Year
  Sex: Female

DRUGS (14)
  1. LYRICA [Suspect]
     Dosage: 150 MG, 2X/DAY
     Route: 048
  2. LANTUS SOLOSTAR [Concomitant]
     Dosage: 28 UNITS SUBCUTANEOUS EVERY MORNING ONCE A DAY
     Route: 058
  3. MIRALAX [Concomitant]
     Dosage: UNK, AS DIRECTED ORALLY
     Route: 048
  4. ASPIRIN [Concomitant]
     Dosage: 81 MG, 1X/DAY (ONCE A DAY)
     Route: 048
  5. AMLODIPINE BESILATE [Concomitant]
     Dosage: 10 UNKNOWN UNITS, TAKE ONE TABLET BY MOUTH IN THE MORNING AFTER A MEAL ONCE A DAY
     Route: 048
  6. PRAVASTATIN SODIUM [Concomitant]
     Dosage: 40 UNKNOWN UNITS TAKE ONE TABLET BY MOUTH IN THE MORNING ONCE A DAY
     Route: 048
  7. GLYBURIDE [Concomitant]
     Indication: DIABETES MELLITUS
     Dosage: 10 MG, 2X/DAY (5 MG 2 TABLET ORALLY TWICE A DAY)
  8. PRILOSEC [Concomitant]
     Indication: DIABETES MELLITUS
     Dosage: 20 MG, 1X/DAY (EVERY MORNING)
     Route: 048
  9. QUINAPRIL HYDROCHLORIDE [Concomitant]
     Indication: DIABETES MELLITUS
     Dosage: 40 MG, 2X/DAY (20 MG 2 TABLET ORALLY TWICE A DAY)
     Route: 048
  10. METOPROLOL TARTRATE [Concomitant]
     Indication: DIABETES MELLITUS
     Dosage: 50 MG, 2X/DAY
     Route: 048
  11. LOSARTAN POTASSIUM [Concomitant]
     Indication: DIABETES MELLITUS
     Dosage: 50 UNKNOWN UNITS, TAKE ONE TABLET BY MOUTH IN THE MORNING ORALLY ONCE A DAY
     Route: 048
  12. ULTRAM [Concomitant]
     Indication: DIABETES MELLITUS
     Dosage: 50 UNKNOWN UNITS, TAKE ONE TABLET BY MOUTH EVERY 6 HOURS AS NEEDED
     Route: 048
  13. VALIUM [Concomitant]
     Indication: DIABETES MELLITUS
     Dosage: 5 MG, 3X/DAY (5 MG 1 TABLET AS NEEDED ORALLY EVERY 8 HOURS AS NEEDED)
     Route: 048
  14. VICODIN ES [Concomitant]
     Indication: DIABETES MELLITUS
     Dosage: 7.5-750 MG AS DIRECTED ORALLY QD- BID
     Route: 048

REACTIONS (1)
  - Pain [Unknown]
